FAERS Safety Report 7222942-4 (Version None)
Quarter: 2011Q1

REPORT INFORMATION
  Report Type: 
  Country: None (occurrence: None)
  Receive Date: 20110112
  Receipt Date: 20101229
  Transmission Date: 20110831
  Serious: No
  Sender: FDA-Public Use
  Company Number: US-B.I. PHARMACEUTICALS,INC./RIDGEFIELD-2011-BP-00299BP

PATIENT
  Sex: Male

DRUGS (1)
  1. PRADAXA [Suspect]
     Indication: ATRIAL FIBRILLATION
     Dosage: 300 MG
     Route: 048
     Dates: start: 20101201

REACTIONS (8)
  - ABDOMINAL DISTENSION [None]
  - THROAT IRRITATION [None]
  - ABDOMINAL DISCOMFORT [None]
  - SENSATION OF FOREIGN BODY [None]
  - DECREASED APPETITE [None]
  - OROPHARYNGEAL PAIN [None]
  - FOREIGN BODY [None]
  - HICCUPS [None]
